FAERS Safety Report 24130523 (Version 7)
Quarter: 2025Q1

REPORT INFORMATION
  Report Type: Spontaneous
  Country: US (occurrence: US)
  Receive Date: 20240724
  Receipt Date: 20250205
  Transmission Date: 20250408
  Serious: Yes (Hospitalization)
  Sender: AVADEL CNS PHARMACEUTICALS, LLC
  Company Number: US-AVADEL CNS PHARMACEUTICALS, LLC-2024AVA01172

PATIENT
  Sex: Male
  Weight: 95.238 kg

DRUGS (11)
  1. LUMRYZ [Suspect]
     Active Substance: SODIUM OXYBATE
     Indication: Narcolepsy
     Route: 048
     Dates: start: 2024, end: 2024
  2. LUMRYZ [Suspect]
     Active Substance: SODIUM OXYBATE
     Indication: Narcolepsy
     Dosage: 7.5 G, ONCE NIGHTLY
     Route: 048
     Dates: start: 2024, end: 20240805
  3. LUMRYZ [Suspect]
     Active Substance: SODIUM OXYBATE
     Dosage: 7.5 G, ONCE NIGHTLY
     Route: 048
     Dates: start: 202409
  4. LUMRYZ [Suspect]
     Active Substance: SODIUM OXYBATE
     Indication: Narcolepsy
     Dosage: 9 G, ONCE NIGHTLY
     Route: 048
     Dates: end: 20250122
  5. WAKIX [Suspect]
     Active Substance: PITOLISANT HYDROCHLORIDE
  6. RITALIN [Suspect]
     Active Substance: METHYLPHENIDATE HYDROCHLORIDE
  7. SUNOSI [Suspect]
     Active Substance: SOLRIAMFETOL
     Dosage: 150 MG, 1X/DAY (DAYTIME)
  8. VITAMINS NOS [Concomitant]
     Active Substance: VITAMINS
  9. LIPITOR [Concomitant]
     Active Substance: ATORVASTATIN CALCIUM
     Dosage: 10 MG, 1X/DAY
  10. METOPROLOL [Concomitant]
     Active Substance: METOPROLOL
     Dosage: 12.5 MG (1/2 PILL), 2X/DAY
  11. ^ALL KINDS OF DIFFERENT [UNSPECIFIED] MEDICINES^ [Concomitant]
     Dates: start: 2024

REACTIONS (12)
  - Rib fracture [Recovered/Resolved]
  - Cough [Not Recovered/Not Resolved]
  - Pneumonia [Recovered/Resolved]
  - Insomnia [Not Recovered/Not Resolved]
  - Performance status decreased [Not Recovered/Not Resolved]
  - Middle insomnia [Not Recovered/Not Resolved]
  - Fatigue [Not Recovered/Not Resolved]
  - Heart rate increased [Unknown]
  - Dyspnoea [Unknown]
  - Somnolence [Not Recovered/Not Resolved]
  - Depression [Not Recovered/Not Resolved]
  - Panic attack [Unknown]

NARRATIVE: CASE EVENT DATE: 20240101
